FAERS Safety Report 5906018-1 (Version None)
Quarter: 2008Q4

REPORT INFORMATION
  Report Type: 
  Country: None (occurrence: None)
  Receive Date: 20081002
  Receipt Date: 20080922
  Transmission Date: 20090506
  Serious: Yes (Hospitalization)
  Sender: FDA-Public Use
  Company Number: US-AVENTIS-200814371US

PATIENT
  Sex: Female
  Weight: 79.9 kg

DRUGS (20)
  1. LASIX [Suspect]
     Dosage: DOSE: UNK
  2. ENBREL [Suspect]
     Dosage: DOSE: 1 IN 1 DAY
     Route: 058
     Dates: start: 20060202, end: 20060815
  3. VALSARTAN [Suspect]
     Dosage: DOSE: UNK
  4. DICLOFENAC [Suspect]
     Dosage: DOSE: UNK
  5. PANTOPRAZOLE SODIUM [Concomitant]
     Dosage: DOSE: 2 IN 1 DAY
  6. FLUOXETINE HYDROCHLORIDE [Concomitant]
     Dosage: DOSE: 1 IN 1 DAY
  7. PREDNISONE [Concomitant]
     Dosage: DOSE: UNK
  8. ATORVASTATIN [Concomitant]
     Dosage: DOSE: 1 IN 1 DAY
  9. CARVEDILOL [Concomitant]
     Dosage: DOSE: 2 IN 1 DAY
  10. IRON [Concomitant]
     Dosage: DOSE: 2 IN 1 DAY
  11. ALBUTEROL SULFATE [Concomitant]
     Dosage: DOSE: 2 IN 1 DAY
  12. IPRATROPIUM BROMIDE [Concomitant]
     Dosage: DOSE: 2 IN 1 DAY
  13. WARFARIN SODIUM [Concomitant]
     Dosage: DOSE: 1 IN 1 DAY
  14. ERGOCALCIFEROL [Concomitant]
     Dosage: DOSE: 2 IN 1 DAY
  15. CALCIUM CARBONATE [Concomitant]
     Dosage: DOSE: 3 IN 1 DAY
  16. POTASSIUM CHLORIDE [Concomitant]
     Dosage: DOSE: 1 IN DAYS
  17. ACETAMINOPHEN AND OXYCODONE HCL [Concomitant]
     Dosage: DOSE: AS NECESSARY
  18. NIFEDIPINE [Concomitant]
     Dosage: DOSE: 1 IN 1 DAY
  19. TIOTROPIUM [Concomitant]
     Dosage: DOSE: 1 IN DAYS
  20. PROCRIT [Concomitant]
     Dosage: DOSE: 1 IN 2 WEEKS

REACTIONS (22)
  - ANAEMIA [None]
  - BLOOD CREATININE INCREASED [None]
  - BRONCHITIS [None]
  - CARDIAC FAILURE CONGESTIVE [None]
  - CARDIOMYOPATHY [None]
  - CATARACT [None]
  - CELLULITIS [None]
  - CHRONIC OBSTRUCTIVE PULMONARY DISEASE [None]
  - DEEP VEIN THROMBOSIS [None]
  - DEHYDRATION [None]
  - GROIN PAIN [None]
  - HAEMATURIA [None]
  - HYPERLIPIDAEMIA [None]
  - HYPERTENSION [None]
  - MYOCARDIAL INFARCTION [None]
  - OCCULT BLOOD [None]
  - OEDEMA PERIPHERAL [None]
  - OVARIAN CYST [None]
  - PAIN IN EXTREMITY [None]
  - PNEUMONIA [None]
  - RENAL FAILURE [None]
  - URINARY TRACT INFECTION [None]
